FAERS Safety Report 4680857-X (Version None)
Quarter: 2005Q2

REPORT INFORMATION
  Report Type: 
  Country: None (occurrence: None)
  Receive Date: 20050603
  Receipt Date: 20050520
  Transmission Date: 20051028
  Serious: Yes (Other)
  Sender: FDA-Public Use
  Company Number: PL-SOLVAY-00205001862

PATIENT
  Age: 24808 Day
  Sex: Female
  Weight: 72 kg

DRUGS (3)
  1. COVERSYL [Suspect]
     Indication: PROPHYLAXIS
     Dosage: DAILY DOSE: 4 MILLIGRAM(S)
     Route: 048
     Dates: start: 20040803
  2. DIAPREL [Concomitant]
     Indication: ILL-DEFINED DISORDER
     Dosage: DAILY DOSE:  UNKNOWN
     Route: 048
     Dates: start: 20030729
  3. BLINDED THERAPY [PERINDOPRIL/INDAPAMIDE VS PLACEBO] [Suspect]
     Indication: ILL-DEFINED DISORDER
     Dosage: DAILY DOSE: 2 DOSAGE FORM
     Route: 048
     Dates: start: 20020926

REACTIONS (1)
  - ALBUMINURIA [None]
